FAERS Safety Report 22370387 (Version 1)
Quarter: 2023Q2

REPORT INFORMATION
  Report Type: Spontaneous
  Country: BR (occurrence: BR)
  Receive Date: 20230526
  Receipt Date: 20230526
  Transmission Date: 20230721
  Serious: Yes (Other)
  Sender: FDA-Public Use
  Company Number: BR-ABBOTT-2023A-1363178

PATIENT
  Sex: Female
  Weight: 130 kg

DRUGS (1)
  1. DIVALPROEX SODIUM [Suspect]
     Active Substance: DIVALPROEX SODIUM
     Indication: Product used for unknown indication
     Dosage: TOOK BETWEEN 10 AND 15 TABLETS OF DIVALPROEX SODIUM
     Route: 065

REACTIONS (1)
  - Intentional overdose [Unknown]
